FAERS Safety Report 4313021-4 (Version None)
Quarter: 2004Q1

REPORT INFORMATION
  Report Type: 
  Country: None (occurrence: None)
  Receive Date: 20040304
  Receipt Date: 20040217
  Transmission Date: 20041129
  Serious: Yes (Other)
  Sender: FDA-Public Use
  Company Number: 2004-DE-00765GD

PATIENT
  Age: 80 Year
  Sex: Male

DRUGS (9)
  1. THEOPHYLLINE [Suspect]
     Indication: CHRONIC OBSTRUCTIVE AIRWAYS DISEASE
     Dosage: 600 MG ( THREE TIMES DAILY)
  2. LEVOFLOXACIN [Suspect]
     Indication: PNEUMONIA
     Dosage: 500 MG
  3. DYAZIDE (DYAZIDE/CAN/) [Concomitant]
  4. AZATHIOPRINE [Concomitant]
  5. MECLIZINE [Concomitant]
  6. ALBUTEROL [Concomitant]
  7. MORPHINE [Concomitant]
  8. METRONIDAZOLE [Concomitant]
  9. NARCOTICS [Concomitant]

REACTIONS (29)
  - ABDOMINAL DISTENSION [None]
  - ABDOMINAL PAIN UPPER [None]
  - ATRIAL TACHYCARDIA [None]
  - CONFUSIONAL STATE [None]
  - DELIRIUM [None]
  - DIABETIC KETOACIDOSIS [None]
  - DISORIENTATION [None]
  - DRUG INTERACTION [None]
  - DRUG TOXICITY [None]
  - DYSPNOEA [None]
  - FALL [None]
  - FEMORAL NECK FRACTURE [None]
  - HYPOKALAEMIA [None]
  - ILEUS [None]
  - INFECTION [None]
  - INTESTINAL ISCHAEMIA [None]
  - LACTIC ACIDOSIS [None]
  - METABOLIC ACIDOSIS [None]
  - MUCOSAL DRYNESS [None]
  - NEUTROPHIL COUNT INCREASED [None]
  - OXYGEN SATURATION DECREASED [None]
  - PNEUMONIA [None]
  - RESPIRATORY ALKALOSIS [None]
  - RESPIRATORY RATE INCREASED [None]
  - SEPSIS [None]
  - SKIN TURGOR DECREASED [None]
  - STARVATION [None]
  - TACHYCARDIA [None]
  - WHITE BLOOD CELL COUNT INCREASED [None]
